FAERS Safety Report 15341986 (Version 1)
Quarter: 2018Q3

REPORT INFORMATION
  Report Type: Spontaneous
  Country: US (occurrence: US)
  Receive Date: 20180828
  Receipt Date: 20180828
  Transmission Date: 20181010
  Serious: Yes (Death)
  Sender: FDA-Public Use
  Company Number: None

PATIENT
  Age: 77 Year
  Sex: Female

DRUGS (4)
  1. FLUOROURACIL. [Suspect]
     Active Substance: FLUOROURACIL
     Indication: IRON DEFICIENCY ANAEMIA
     Dosage: OTHER FREQUENCY:Q 14 DAYS;?
     Route: 058
     Dates: start: 20180213
  2. CAPECITABINE. [Concomitant]
     Active Substance: CAPECITABINE
  3. OXALIPLATIN. [Concomitant]
     Active Substance: OXALIPLATIN
  4. LEUCOVORIN. [Concomitant]
     Active Substance: LEUCOVORIN

REACTIONS (1)
  - Death [None]
